FAERS Safety Report 7972782 (Version 2)
Quarter: 2014Q1

REPORT INFORMATION
  Report Type: Spontaneous
  Country: US (occurrence: US)
  Receive Date: 20110603
  Receipt Date: 20140205
  Transmission Date: 20141002
  Serious: Yes (Hospitalization)
  Sender: FDA-Public Use
  Company Number: US-JNJFOC-20110511070

PATIENT
  Sex: Male
  Weight: 77.11 kg

DRUGS (5)
  1. DURAGESIC [Suspect]
     Indication: PANCREATIC DISORDER
     Route: 062
     Dates: start: 2000, end: 2008
  2. DURAGESIC [Suspect]
     Indication: PRODUCT USED FOR UNKNOWN INDICATION
     Route: 062
     Dates: start: 201105
  3. WATSON FENTANYL TRANSDERMAL SYSTEM [Suspect]
     Indication: PANCREATIC DISORDER
     Route: 062
     Dates: start: 2008, end: 201105
  4. XANAX [Concomitant]
     Indication: ANXIETY
     Route: 048
     Dates: start: 1995
  5. ASPIRIN [Concomitant]
     Indication: CARDIOVASCULAR DISORDER
     Route: 048

REACTIONS (8)
  - Device related infection [Recovered/Resolved]
  - Pancreatic disorder [Recovered/Resolved]
  - Heart rate decreased [Recovered/Resolved]
  - Drug ineffective [Not Recovered/Not Resolved]
  - Treatment noncompliance [Unknown]
  - Adverse event [Not Recovered/Not Resolved]
  - Malaise [Not Recovered/Not Resolved]
  - Feeling abnormal [Not Recovered/Not Resolved]
